FAERS Safety Report 4589767-X (Version None)
Quarter: 2005Q1

REPORT INFORMATION
  Report Type: 
  Country: None (occurrence: None)
  Receive Date: 20050223
  Receipt Date: 20041123
  Transmission Date: 20050727
  Serious: Yes (Death, Hospitalization)
  Sender: FDA-Public Use
  Company Number: AT-BRISTOL-MYERS SQUIBB COMPANY-12773206

PATIENT
  Age: 60 Year
  Sex: Female
  Weight: 61 kg

DRUGS (18)
  1. CYCLOPHOSPHAMIDE [Suspect]
     Indication: BREAST CANCER
     Dates: start: 20040302, end: 20040302
  2. ALIMTA [Suspect]
     Indication: BREAST CANCER
     Dates: start: 20040302, end: 20040302
  3. LASIX [Concomitant]
     Indication: PLEURAL EFFUSION
     Route: 042
     Dates: start: 20040224, end: 20040228
  4. ALDACTONE [Concomitant]
     Indication: PLEURAL EFFUSION
     Dosage: 200 MG IV 10-MAR-04 TO 12-MAR-04
     Route: 048
     Dates: start: 20040227, end: 20040308
  5. LOSEC [Concomitant]
     Indication: PROPHYLAXIS AGAINST GASTROINTESTINAL ULCER
     Dosage: 40 MG ORAL 02-MAR-04 TO 12-MAR-2004
     Route: 042
     Dates: start: 20040226, end: 20040301
  6. CODIPRONT [Concomitant]
     Indication: DYSPNOEA
     Dates: start: 20040227, end: 20040307
  7. VENDAL [Concomitant]
     Indication: DYSPNOEA
     Route: 058
     Dates: start: 20040229, end: 20040312
  8. VENDAL [Concomitant]
     Route: 042
     Dates: start: 20040306, end: 20040309
  9. DURAGESIC [Concomitant]
     Indication: DYSPNOEA
     Route: 062
     Dates: start: 20040308, end: 20040312
  10. NAVOBAN [Concomitant]
     Indication: ANTIEMETIC SUPPORTIVE CARE
     Route: 042
     Dates: start: 20040306, end: 20040308
  11. FRAGMIN [Concomitant]
     Route: 042
     Dates: start: 20040305, end: 20040312
  12. TROMCARDIN [Concomitant]
     Indication: HYPOKALAEMIA
     Route: 042
     Dates: start: 20040310, end: 20040312
  13. POTASSIUM CHLORIDE [Concomitant]
     Indication: HYPOKALAEMIA
     Route: 042
     Dates: start: 20040310, end: 20040312
  14. FOLIC ACID [Concomitant]
     Route: 048
     Dates: start: 20040224, end: 20040310
  15. VITAMIN B-12 [Concomitant]
     Dates: start: 20040224
  16. EUPHYLLIN [Concomitant]
     Indication: PLEURAL EFFUSION
     Route: 042
     Dates: start: 20040224, end: 20040226
  17. RESPICUR [Concomitant]
     Indication: DYSPNOEA
     Route: 048
     Dates: start: 20040227, end: 20040312
  18. NEODOLPASSE [Concomitant]
     Indication: PAIN
     Route: 042
     Dates: start: 20040307, end: 20040312

REACTIONS (3)
  - BREAST CANCER [None]
  - NEUTROPENIA [None]
  - STREPTOCOCCAL SEPSIS [None]
